FAERS Safety Report 22918441 (Version 2)
Quarter: 2023Q4

REPORT INFORMATION
  Report Type: Other
  Country: US (occurrence: US)
  Receive Date: 20230907
  Receipt Date: 20231123
  Transmission Date: 20240110
  Serious: No
  Sender: FDA-Public Use
  Company Number: US-TRAVERE-2023TVT00296

PATIENT
  Age: 42 Year
  Sex: Female

DRUGS (1)
  1. FILSPARI [Suspect]
     Active Substance: SPARSENTAN
     Indication: IgA nephropathy
     Route: 048
     Dates: end: 20230626

REACTIONS (3)
  - Haemorrhoidal haemorrhage [Unknown]
  - Diarrhoea [Unknown]
  - Wrong technique in product usage process [Unknown]
